FAERS Safety Report 10189822 (Version 1)
Quarter: 2014Q2

REPORT INFORMATION
  Report Type: Spontaneous
  Country: US (occurrence: US)
  Receive Date: 20140522
  Receipt Date: 20140522
  Transmission Date: 20141212
  Serious: Yes (Other)
  Sender: FDA-Public Use
  Company Number: US-SA-2013SA126377

PATIENT
  Age: 69 Year
  Sex: Male
  Weight: 113 kg

DRUGS (9)
  1. LANTUS SOLOSTAR [Suspect]
     Indication: TYPE 2 DIABETES MELLITUS
     Dosage: DOSE:28 UNIT(S)
     Route: 051
  2. LANTUS SOLOSTAR [Suspect]
     Indication: TYPE 2 DIABETES MELLITUS
     Dosage: FROM: 2 MONTH DOSE:15 UNIT(S)
     Route: 051
     Dates: start: 20120120
  3. SOLOSTAR [Concomitant]
  4. SOLOSTAR [Concomitant]
  5. METFORMIN [Concomitant]
     Dates: start: 2008
  6. METOPROLOL [Concomitant]
     Dates: start: 2013
  7. CRESTOR [Concomitant]
     Dates: start: 2011
  8. ASPIRIN [Concomitant]
     Dates: start: 2000
  9. PRADAXA [Concomitant]
     Dates: start: 2013

REACTIONS (2)
  - Weight increased [Unknown]
  - Hypoacusis [Unknown]
